FAERS Safety Report 13630326 (Version 1)
Quarter: 2017Q2

REPORT INFORMATION
  Report Type: Spontaneous
  Country: US (occurrence: US)
  Receive Date: 20170531
  Receipt Date: 20170531
  Transmission Date: 20170830
  Serious: No
  Sender: FDA-Public Use
  Company Number: US-ASTELLAS-1295007

PATIENT
  Age: 76 Year
  Sex: Male

DRUGS (11)
  1. GLYBURIDE. [Concomitant]
     Active Substance: GLYBURIDE
  2. ASPIRIN. [Concomitant]
     Active Substance: ASPIRIN
  3. ZOFRAN [Concomitant]
     Active Substance: ONDANSETRON HYDROCHLORIDE
  4. LISINOPRIL. [Concomitant]
     Active Substance: LISINOPRIL
  5. LOVASTATIN. [Concomitant]
     Active Substance: LOVASTATIN
  6. TYLENOL [Concomitant]
     Active Substance: ACETAMINOPHEN
  7. METFORMIN [Concomitant]
     Active Substance: METFORMIN HYDROCHLORIDE
     Route: 065
  8. NOVOLIN 70/30 [Concomitant]
     Active Substance: INSULIN HUMAN
  9. IBUPROFEN. [Concomitant]
     Active Substance: IBUPROFEN
  10. DOXYCYCLINE. [Concomitant]
     Active Substance: DOXYCYCLINE
  11. TARCEVA [Suspect]
     Active Substance: ERLOTINIB HYDROCHLORIDE
     Indication: LUNG NEOPLASM MALIGNANT
     Dosage: DATE OF LAST DOSE PRIOR TO SAE: 25 OCT 2013
     Route: 065
     Dates: start: 20131014, end: 20131101

REACTIONS (7)
  - Fatigue [Not Recovered/Not Resolved]
  - Dyspepsia [Not Recovered/Not Resolved]
  - Diarrhoea [Not Recovered/Not Resolved]
  - Weight decreased [Not Recovered/Not Resolved]
  - Dermatitis acneiform [Not Recovered/Not Resolved]
  - Abdominal pain [Not Recovered/Not Resolved]
  - Dysgeusia [Unknown]

NARRATIVE: CASE EVENT DATE: 20131014
